FAERS Safety Report 16853843 (Version 7)
Quarter: 2020Q2

REPORT INFORMATION
  Report Type: Spontaneous
  Country: US (occurrence: US)
  Receive Date: 20190926
  Receipt Date: 20200413
  Transmission Date: 20200713
  Serious: Yes (Hospitalization, Other)
  Sender: FDA-Public Use
  Company Number: US-BIOGEN-2019BI00788012

PATIENT
  Age: 47 Year
  Sex: Female

DRUGS (5)
  1. TIROSINT [Concomitant]
     Active Substance: LEVOTHYROXINE SODIUM
     Indication: HYPOTHYROIDISM
     Route: 065
  2. AVONEX [Suspect]
     Active Substance: INTERFERON BETA-1A
  3. AVONEX [Suspect]
     Active Substance: INTERFERON BETA-1A
  4. AVONEX [Suspect]
     Active Substance: INTERFERON BETA-1A
     Indication: MULTIPLE SCLEROSIS
     Route: 030
     Dates: start: 20020726, end: 20200101
  5. AVONEX [Suspect]
     Active Substance: INTERFERON BETA-1A

REACTIONS (10)
  - Injection site infection [Recovered/Resolved]
  - Injection site hypersensitivity [Unknown]
  - Influenza like illness [Recovered/Resolved]
  - Fall [Recovered/Resolved]
  - Pyrexia [Recovered/Resolved]
  - Injection site joint inflammation [Unknown]
  - Joint abscess [Not Recovered/Not Resolved]
  - Gait disturbance [Recovered/Resolved]
  - Streptococcal abscess [Recovered/Resolved]
  - Exposure to contaminated device [Unknown]

NARRATIVE: CASE EVENT DATE: 201908
